FAERS Safety Report 18920059 (Version 1)
Quarter: 2021Q1

REPORT INFORMATION
  Report Type: Spontaneous
  Country: US (occurrence: US)
  Receive Date: 20210222
  Receipt Date: 20210222
  Transmission Date: 20210420
  Serious: No
  Sender: FDA-Public Use
  Company Number: US-TEVA-2021-US-1879097

PATIENT
  Age: 56 Year
  Sex: Female
  Weight: 63.5 kg

DRUGS (12)
  1. PROAIR HFA [Suspect]
     Active Substance: ALBUTEROL SULFATE
  2. PROAIR HFA [Suspect]
     Active Substance: ALBUTEROL SULFATE
  3. PANTOPRAZOLE [Concomitant]
     Active Substance: PANTOPRAZOLE
  4. PREDNISONE. [Concomitant]
     Active Substance: PREDNISONE
  5. PROAIR HFA [Suspect]
     Active Substance: ALBUTEROL SULFATE
     Indication: PRODUCT USED FOR UNKNOWN INDICATION
     Route: 065
  6. HYDROCODONE?ACETAMINOPHEN [Concomitant]
     Active Substance: ACETAMINOPHEN\HYDROCODONE
  7. HYDROCHLOROTHIAZIDE. [Concomitant]
     Active Substance: HYDROCHLOROTHIAZIDE
  8. BREO ELLIPTA INHALER [Concomitant]
     Dosage: INHALER
  9. HYDRALAZINE [Concomitant]
     Active Substance: HYDRALAZINE HYDROCHLORIDE
  10. PROAIR HFA [Suspect]
     Active Substance: ALBUTEROL SULFATE
  11. TRUXIMA [Concomitant]
     Active Substance: RITUXIMAB-ABBS
  12. BYSTOLIC [Concomitant]
     Active Substance: NEBIVOLOL HYDROCHLORIDE

REACTIONS (1)
  - Light chain analysis abnormal [Unknown]
